FAERS Safety Report 8571807-4 (Version None)
Quarter: 2012Q3

REPORT INFORMATION
  Report Type: 
  Country: None (occurrence: None)
  Receive Date: 20120806
  Receipt Date: 20120725
  Transmission Date: 20120928
  Serious: Yes (Hospitalization)
  Sender: FDA-Public Use
  Company Number: IT-JNJFOC-20120701779

PATIENT
  Sex: Male

DRUGS (6)
  1. ASENAPINE [Concomitant]
     Indication: BIPOLAR DISORDER
     Route: 048
     Dates: start: 20120626
  2. RISPERDAL [Suspect]
     Route: 048
     Dates: start: 20120703, end: 20120703
  3. RISPERDAL [Suspect]
     Route: 048
     Dates: start: 20120703, end: 20120703
  4. RISPERDAL [Suspect]
     Indication: SELF INJURIOUS BEHAVIOUR
     Route: 048
     Dates: end: 20120625
  5. RISPERDAL [Suspect]
     Indication: PRODUCT USED FOR UNKNOWN INDICATION
     Route: 048
     Dates: end: 20120625
  6. LITHIUM CARBONATE [Concomitant]
     Indication: BIPOLAR DISORDER
     Route: 048

REACTIONS (3)
  - SELF INJURIOUS BEHAVIOUR [None]
  - PSYCHOMOTOR HYPERACTIVITY [None]
  - INTENTIONAL OVERDOSE [None]
